FAERS Safety Report 8357217-3 (Version None)
Quarter: 2012Q2

REPORT INFORMATION
  Report Type: 
  Country: None (occurrence: None)
  Receive Date: 20120514
  Receipt Date: 20120501
  Transmission Date: 20120825
  Serious: Yes (Other)
  Sender: FDA-Public Use
  Company Number: US-ELI_LILLY_AND_COMPANY-US201205000560

PATIENT
  Age: 29 Year
  Sex: Female

DRUGS (2)
  1. CYMBALTA [Suspect]
     Indication: FIBROMYALGIA
     Dosage: 60 MG, QD
     Dates: start: 20120101, end: 20120401
  2. CYMBALTA [Suspect]
     Dosage: 60 MG, QD
     Dates: start: 20120401

REACTIONS (6)
  - BLOOD PRESSURE INCREASED [None]
  - FALL [None]
  - FIBROMYALGIA [None]
  - MUSCULAR WEAKNESS [None]
  - DIZZINESS [None]
  - RETINAL HAEMORRHAGE [None]
